FAERS Safety Report 11536372 (Version 1)
Quarter: 2015Q3

REPORT INFORMATION
  Report Type: Other
  Country: ES (occurrence: ES)
  Receive Date: 20150922
  Receipt Date: 20150922
  Transmission Date: 20151125
  Serious: Yes (Other)
  Sender: FDA-Public Use
  Company Number: ES-JUBILANT GENERICS LIMITED-1042171

PATIENT
  Age: 3 Week
  Sex: Male
  Weight: 1.18 kg

DRUGS (4)
  1. COTRIMAZOLE [Concomitant]
     Active Substance: SULFAMETHOXAZOLE\TRIMETHOPRIM
  2. DOPAMINE [Concomitant]
     Active Substance: DOPAMINE\DOPAMINE HYDROCHLORIDE
  3. LEVOFLOXACIN. [Suspect]
     Active Substance: LEVOFLOXACIN
  4. OXYGEN. [Concomitant]
     Active Substance: OXYGEN

REACTIONS (1)
  - Distributive shock [Recovered/Resolved]

NARRATIVE: CASE EVENT DATE: 20150908
